FAERS Safety Report 9189451 (Version 1)
Quarter: 2013Q1

REPORT INFORMATION
  Report Type: Spontaneous
  Country: US (occurrence: None)
  Receive Date: 20130322
  Receipt Date: 20130322
  Transmission Date: 20140127
  Serious: No
  Sender: FDA-Public Use
  Company Number: None

PATIENT
  Age: 61 Year
  Sex: Female
  Weight: 63.5 kg

DRUGS (7)
  1. VIMPAT [Suspect]
     Indication: CONVULSION
     Dosage: 300 MG 200 MG QAM QHS PO
     Route: 048
     Dates: start: 20120229, end: 20130224
  2. ESTROGEN [Concomitant]
  3. PROGESTERONE [Concomitant]
  4. CITALOPRAM [Concomitant]
  5. TRAZADONE [Concomitant]
  6. BENAZEPRIL [Concomitant]
  7. PRAVASTATIN [Concomitant]

REACTIONS (1)
  - Rash macular [None]
